FAERS Safety Report 9346636 (Version 2)
Quarter: 2013Q2

REPORT INFORMATION
  Report Type: Report from Study
  Country: JP (occurrence: JP)
  Receive Date: 20130613
  Receipt Date: 20130619
  Transmission Date: 20140414
  Serious: Yes (Hospitalization)
  Sender: FDA-Public Use
  Company Number: JP-SANOFI-AVENTIS-2013SA057393

PATIENT
  Age: 46 Year
  Sex: Female

DRUGS (14)
  1. DOCETAXEL [Suspect]
     Indication: HER-2 POSITIVE BREAST CANCER
     Route: 042
     Dates: start: 20130312, end: 20130514
  2. DOCETAXEL [Suspect]
     Indication: HER-2 POSITIVE BREAST CANCER
     Route: 042
     Dates: start: 20130604
  3. PERTUZUMAB [Suspect]
     Indication: HER-2 POSITIVE BREAST CANCER
     Route: 042
     Dates: start: 20130312, end: 20130514
  4. PERTUZUMAB [Suspect]
     Indication: HER-2 POSITIVE BREAST CANCER
     Route: 042
     Dates: start: 20130604
  5. TRASTUZUMAB [Suspect]
     Indication: HER-2 POSITIVE BREAST CANCER
     Route: 042
     Dates: start: 20130312, end: 20130514
  6. TRASTUZUMAB [Suspect]
     Indication: HER-2 POSITIVE BREAST CANCER
     Route: 042
     Dates: start: 20130604
  7. FLUOROURACIL [Suspect]
     Indication: HER-2 POSITIVE BREAST CANCER
     Route: 042
     Dates: start: 20121121
  8. CYCLOPHOSPHAMIDE [Suspect]
     Indication: HER-2 POSITIVE BREAST CANCER
     Route: 042
     Dates: start: 20121121
  9. EPIRUBICIN HYDROCHLORIDE [Suspect]
     Indication: HER-2 POSITIVE BREAST CANCER
     Route: 042
     Dates: start: 20121121
  10. RABEPRAZOLE SODIUM [Concomitant]
     Dates: start: 20121121
  11. HEPARINOID [Concomitant]
     Dosage: ADEQUATE DOSE
     Dates: start: 20120416
  12. BETAMETHASONE BUTYRATE PROPIONATE [Concomitant]
     Dosage: ADEQUATE DOSE
     Dates: start: 20130501
  13. UREA [Concomitant]
     Dosage: ADEQUATE DOSE
     Dates: start: 20130501
  14. SODIUM GUALENATE [Concomitant]
     Dates: start: 20130415

REACTIONS (1)
  - Calculus ureteric [Recovering/Resolving]
